FAERS Safety Report 24049016 (Version 1)
Quarter: 2024Q3

REPORT INFORMATION
  Report Type: Report from Study
  Country: CA (occurrence: CA)
  Receive Date: 20240704
  Receipt Date: 20240704
  Transmission Date: 20241016
  Serious: Yes (Hospitalization, Other)
  Sender: TAKEDA
  Company Number: CA-TAKEDA-2024TUS057152

PATIENT
  Age: 10 Year
  Sex: Female

DRUGS (1)
  1. VEDOLIZUMAB [Suspect]
     Active Substance: VEDOLIZUMAB
     Indication: Crohn^s disease
     Dosage: 300 MILLIGRAM
     Route: 042
     Dates: start: 20240228

REACTIONS (20)
  - Hypoalbuminaemia [Unknown]
  - Cholelithiasis [Unknown]
  - Pancreatitis [Unknown]
  - Crohn^s disease [Unknown]
  - Nephrolithiasis [Unknown]
  - Intestine transplant rejection [Unknown]
  - Ascites [Unknown]
  - Iron deficiency anaemia [Unknown]
  - Vitamin D deficiency [Unknown]
  - Blood zinc abnormal [Unknown]
  - Urine ketone body present [Unknown]
  - Face oedema [Unknown]
  - Oedema peripheral [Unknown]
  - Weight increased [Unknown]
  - Faecal volume increased [Unknown]
  - Dehydration [Unknown]
  - Sacroiliitis [Unknown]
  - Faecal volume decreased [Unknown]
  - Psoriasis [Unknown]
  - Off label use [Unknown]

NARRATIVE: CASE EVENT DATE: 20240228
